FAERS Safety Report 4312989-X (Version None)
Quarter: 2004Q1

REPORT INFORMATION
  Report Type: 
  Country: None (occurrence: None)
  Receive Date: 20040305
  Receipt Date: 20040305
  Transmission Date: 20041129
  Serious: No
  Sender: FDA-Public Use
  Company Number: None

PATIENT
  Age: 48 Year
  Sex: Female

DRUGS (1)
  1. VISICOL [Suspect]
     Indication: COLONOSCOPY
     Dosage: 20 TABLETS 4 TAB Q 15 ORAL
     Route: 048
     Dates: start: 20031103, end: 20031103

REACTIONS (2)
  - DIZZINESS [None]
  - HYPERHIDROSIS [None]
